FAERS Safety Report 8594044-6 (Version None)
Quarter: 2012Q3

REPORT INFORMATION
  Report Type: 
  Country: None (occurrence: None)
  Receive Date: 20120814
  Receipt Date: 20120807
  Transmission Date: 20120928
  Serious: Yes (Other)
  Sender: FDA-Public Use
  Company Number: PHHY2012TR068923

PATIENT
  Age: 36 Year
  Sex: Female

DRUGS (3)
  1. HYDROCHLOROTHIAZIDE, SPIRONOLACTONE [Suspect]
     Indication: HIRSUTISM
  2. METRONIDAZOLE [Suspect]
     Indication: GENITAL INFECTION
     Dosage: 500 MG, QD
     Route: 067
  3. ORNIDAZOLE [Suspect]
     Indication: GENITAL INFECTION
     Dosage: 500 MG, BID
     Route: 048

REACTIONS (2)
  - OLIGOHYDRAMNIOS [None]
  - MATERNAL EXPOSURE DURING PREGNANCY [None]
